FAERS Safety Report 12799486 (Version 2)
Quarter: 2016Q4

REPORT INFORMATION
  Report Type: Spontaneous
  Country: US (occurrence: US)
  Receive Date: 20160930
  Receipt Date: 20161013
  Transmission Date: 20170207
  Serious: Yes (Other)
  Sender: FDA-Public Use
  Company Number: US-BAYER-2016-189258

PATIENT
  Age: 13 Year
  Sex: Male

DRUGS (1)
  1. MAGNEVIST [Suspect]
     Active Substance: GADOPENTETATE DIMEGLUMINE
     Dosage: 7.5 ML, ONCE
     Dates: start: 20160830, end: 20160830

REACTIONS (1)
  - Syncope [None]

NARRATIVE: CASE EVENT DATE: 20160830
